FAERS Safety Report 19106455 (Version 1)
Quarter: 2021Q2

REPORT INFORMATION
  Report Type: Spontaneous
  Country: US (occurrence: US)
  Receive Date: 20210407
  Receipt Date: 20210407
  Transmission Date: 20210717
  Serious: No
  Sender: FDA-Public Use
  Company Number: US-SA-2021SA113166

PATIENT
  Sex: Female

DRUGS (22)
  1. CLOBETASOL [Concomitant]
     Active Substance: CLOBETASOL
  2. CLOBETASOL [Concomitant]
     Active Substance: CLOBETASOL
  3. EPIPEN [Concomitant]
     Active Substance: EPINEPHRINE
  4. PROTOPIC [Concomitant]
     Active Substance: TACROLIMUS
  5. ELOCON [Concomitant]
     Active Substance: MOMETASONE FUROATE
  6. ZYRTEC [Concomitant]
     Active Substance: CETIRIZINE HYDROCHLORIDE
  7. TRIAMCINOLONE [Concomitant]
     Active Substance: TRIAMCINOLONE
  8. DIPHENHYDRAMINE. [Concomitant]
     Active Substance: DIPHENHYDRAMINE
  9. HYDROCORTISONE. [Concomitant]
     Active Substance: HYDROCORTISONE
  10. LIDOCAINE/PRILOCAINE [Concomitant]
     Active Substance: LIDOCAINE\PRILOCAINE
  11. DUPIXENT [Suspect]
     Active Substance: DUPILUMAB
     Indication: DERMATITIS ATOPIC
     Dosage: 300 MG, QOW
     Route: 058
     Dates: start: 202009
  12. ELOCON [Concomitant]
     Active Substance: MOMETASONE FUROATE
  13. HYDROCORTISONE. [Concomitant]
     Active Substance: HYDROCORTISONE
  14. PROTOPIC [Concomitant]
     Active Substance: TACROLIMUS
  15. TACROLIMUS. [Concomitant]
     Active Substance: TACROLIMUS
  16. MOMETASONE [Concomitant]
     Active Substance: MOMETASONE
  17. KENALOG [Concomitant]
     Active Substance: TRIAMCINOLONE ACETONIDE
  18. EPIPEN [Concomitant]
     Active Substance: EPINEPHRINE
  19. MOMETASONE [Concomitant]
     Active Substance: MOMETASONE
  20. DIPHENHYDRAMINE. [Concomitant]
     Active Substance: DIPHENHYDRAMINE
  21. ZYRTEC [Concomitant]
     Active Substance: CETIRIZINE HYDROCHLORIDE
  22. TACROLIMUS. [Concomitant]
     Active Substance: TACROLIMUS

REACTIONS (3)
  - Product use issue [Unknown]
  - Pruritus [Unknown]
  - Therapeutic response decreased [Unknown]

NARRATIVE: CASE EVENT DATE: 202009
